FAERS Safety Report 25234835 (Version 1)
Quarter: 2025Q2

REPORT INFORMATION
  Report Type: Spontaneous
  Country: US (occurrence: US)
  Receive Date: 20250424
  Receipt Date: 20250424
  Transmission Date: 20250716
  Serious: No
  Sender: TAKEDA
  Company Number: US-TAKEDA-2025TUS036574

PATIENT
  Sex: Female

DRUGS (3)
  1. ENTYVIO [Suspect]
     Active Substance: VEDOLIZUMAB
     Indication: Colitis ulcerative
  2. ENTYVIO [Suspect]
     Active Substance: VEDOLIZUMAB
     Indication: Colitis ulcerative
     Dosage: 108 MILLIGRAM, Q2WEEKS
  3. ENTYVIO [Suspect]
     Active Substance: VEDOLIZUMAB

REACTIONS (5)
  - Peripheral swelling [Unknown]
  - Sleep apnoea syndrome [Unknown]
  - Device issue [Unknown]
  - Overweight [Unknown]
  - Cough [Unknown]
